FAERS Safety Report 16813109 (Version 1)
Quarter: 2019Q3

REPORT INFORMATION
  Report Type: Other
  Country: US (occurrence: US)
  Receive Date: 20190916
  Receipt Date: 20190916
  Transmission Date: 20191005
  Serious: No
  Sender: FDA-Public Use
  Company Number: US-LEADIANT BIOSCIENCES INC-2019STPI000102

PATIENT
  Age: 35 Year
  Sex: Male

DRUGS (3)
  1. GLEOSTINE [Concomitant]
     Active Substance: LOMUSTINE
     Dosage: UNK
  2. VINCRISTINE                        /00078802/ [Concomitant]
     Active Substance: VINCRISTINE
  3. MATULANE [Suspect]
     Active Substance: PROCARBAZINE HYDROCHLORIDE
     Indication: NEOPLASM MALIGNANT
     Dosage: 100 MG, UNK
     Route: 048
     Dates: start: 20180609

REACTIONS (1)
  - Skin reaction [Unknown]

NARRATIVE: CASE EVENT DATE: 20190228
